FAERS Safety Report 5205924-3 (Version None)
Quarter: 2006Q4

REPORT INFORMATION
  Report Type: 
  Country: None (occurrence: None)
  Receive Date: 20061026
  Receipt Date: 20060804
  Transmission Date: 20070319
  Serious: No
  Sender: FDA-Public Use
  Company Number: 2006093815

PATIENT
  Age: 90 Year
  Sex: Female
  Weight: 84.369 kg

DRUGS (9)
  1. LYRICA [Suspect]
     Indication: HYPOAESTHESIA
     Dosage: 100 MG (50 MG, 2 IN 1 D), ORAL
     Route: 048
     Dates: start: 20060728, end: 20060729
  2. CALCIUM (CALCIUM) [Concomitant]
  3. OMEGA 3 (FISH OIL) [Concomitant]
  4. MULTI-VITAMINS [Concomitant]
  5. TYLENOL [Concomitant]
  6. LIPITOR [Concomitant]
  7. ALEVE [Concomitant]
  8. LISINOPRIL [Concomitant]
  9. ATENOLOL [Concomitant]

REACTIONS (5)
  - CONFUSIONAL STATE [None]
  - DIZZINESS [None]
  - FEELING DRUNK [None]
  - HYPOAESTHESIA [None]
  - SOMNOLENCE [None]
